FAERS Safety Report 10982551 (Version 2)
Quarter: 2015Q2

REPORT INFORMATION
  Report Type: Spontaneous
  Country: ES (occurrence: ES)
  Receive Date: 20150403
  Receipt Date: 20150430
  Transmission Date: 20150821
  Serious: Yes (Life-Threatening, Hospitalization)
  Sender: FDA-Public Use
  Company Number: ES-TEVA-551998ISR

PATIENT
  Age: 66 Year
  Sex: Female

DRUGS (12)
  1. LINEZOLID. [Interacting]
     Active Substance: LINEZOLID
     Dosage: 1200 MILLIGRAM DAILY; (1-0-1)
     Route: 042
  2. CICLOFALINA [Concomitant]
     Active Substance: PIRACETAM
     Dosage: 800 MILLIGRAM DAILY;
     Route: 048
  3. QUETIAPINA [Interacting]
     Active Substance: QUETIAPINE
     Indication: DEPRESSION
     Dosage: 25 MILLIGRAM DAILY; (0-0-1)
     Route: 048
     Dates: start: 20140618
  4. MIANSERINA HIDROCLORURO [Interacting]
     Active Substance: MIANSERIN HYDROCHLORIDE
     Indication: DEPRESSION
     Dosage: 5 MILLIGRAM DAILY; 1/2 TABLET (0-0-1/2)
     Route: 048
     Dates: start: 20140618
  5. PRIMPERAN [Interacting]
     Active Substance: METOCLOPRAMIDE HYDROCHLORIDE
     Dosage: 30 MILLIGRAM DAILY; (1-1-1)
     Route: 048
  6. POTASION [Concomitant]
     Active Substance: POTASSIUM CHLORIDE
     Dosage: 1200 MILLIGRAM DAILY;
     Route: 048
  7. FLUMIL [Concomitant]
     Active Substance: ACETYLCYSTEINE
     Dosage: 600 MILLIGRAM DAILY; (1-1-1)
     Route: 048
  8. OMEPRAZOL [Suspect]
     Active Substance: OMEPRAZOLE
     Dosage: 20 MILLIGRAM DAILY; (1-0-0)
     Route: 048
  9. LOVENOX [Concomitant]
     Active Substance: ENOXAPARIN SODIUM
     Dosage: 40 MILLIGRAM DAILY; (0-1-0)
     Route: 058
  10. PREDNISONA [Suspect]
     Active Substance: PREDNISONE
     Dosage: 5 MILLIGRAM DAILY; (1-0-0)
     Route: 048
  11. SEGURIL [Suspect]
     Active Substance: FUROSEMIDE
     Dosage: 20 MILLIGRAM DAILY; (1-0-0)
     Route: 042
  12. MEROPENEM. [Concomitant]
     Active Substance: MEROPENEM
     Dosage: 500 MILLIGRAM DAILY; (0-1-0)
     Route: 042

REACTIONS (11)
  - Respiratory distress [Unknown]
  - Sedation [Unknown]
  - Fatigue [Unknown]
  - Dizziness [Unknown]
  - Electrolyte imbalance [Unknown]
  - Tremor [Unknown]
  - Palpitations [Unknown]
  - Confusional state [Unknown]
  - Drug interaction [Unknown]
  - Aspiration bronchial [Unknown]
  - Nausea [Unknown]
